FAERS Safety Report 9207275 (Version 2)
Quarter: 2013Q2

REPORT INFORMATION
  Report Type: Report from Study
  Country: DE (occurrence: DE)
  Receive Date: 20130403
  Receipt Date: 20130502
  Transmission Date: 20140414
  Serious: Yes (Hospitalization)
  Sender: FDA-Public Use
  Company Number: DE-PFIZER INC-2013098815

PATIENT
  Age: 74 Year
  Sex: Male
  Weight: 74 kg

DRUGS (7)
  1. IRINOTECAN HCL [Suspect]
     Indication: COLORECTAL CANCER METASTATIC
     Dosage: 350 MG, QD 15
     Route: 042
     Dates: start: 20120924
  2. RAMIPRIL [Suspect]
     Indication: HYPERTENSION
     Dosage: 5 MG, DAILY
     Route: 048
     Dates: start: 201208, end: 20130227
  3. CETUXIMAB [Suspect]
     Indication: COLORECTAL CANCER METASTATIC
     Dosage: 470 MG, WEEKLY
     Route: 042
     Dates: start: 20120924
  4. FLUOROURACIL [Suspect]
     Indication: COLORECTAL CANCER METASTATIC
     Dosage: 3070 MG, QD 15
     Route: 042
     Dates: start: 20120925
  5. FOLINIC ACID [Suspect]
     Indication: COLORECTAL CANCER METASTATIC
     Dosage: 770 MG, QD15
     Route: 042
     Dates: start: 20120925
  6. INSULIN [Concomitant]
     Dosage: UNK
  7. AMLODIPINE [Concomitant]
     Dosage: 5 MG, 1X/DAY
     Route: 048

REACTIONS (1)
  - Angioedema [Recovered/Resolved]
